FAERS Safety Report 5119265-6 (Version None)
Quarter: 2006Q3

REPORT INFORMATION
  Report Type: 
  Country: None (occurrence: None)
  Receive Date: 20060929
  Receipt Date: 20060926
  Transmission Date: 20061208
  Serious: Yes (Hospitalization)
  Sender: FDA-Public Use
  Company Number: S06-USA-03240-01

PATIENT
  Age: 80 Year
  Sex: Male

DRUGS (11)
  1. NAMENDA [Suspect]
     Indication: DEMENTIA
     Dosage: 5 MG BID PO
     Route: 048
     Dates: end: 20060101
  2. NAMENDA [Suspect]
     Indication: DEMENTIA
     Dates: start: 20060101, end: 20060803
  3. NAMENDA [Suspect]
     Indication: DEMENTIA
     Dosage: 5 MG BID PO
     Route: 048
     Dates: start: 20060804, end: 20060825
  4. CELEBREX [Suspect]
     Dates: end: 20060101
  5. HALDOL [Suspect]
     Dates: start: 20060101, end: 20060101
  6. CLARITIN [Concomitant]
  7. DIOVAN (VELSARTAN) [Concomitant]
  8. ACTOS [Concomitant]
  9. COREG [Concomitant]
  10. ANTIVERT [Concomitant]
  11. AMBIEN [Concomitant]

REACTIONS (4)
  - DEHYDRATION [None]
  - HALLUCINATION [None]
  - RENAL IMPAIRMENT [None]
  - TREMOR [None]
